FAERS Safety Report 4390304-3 (Version None)
Quarter: 2004Q2

REPORT INFORMATION
  Report Type: 
  Country: None (occurrence: None)
  Receive Date: 20040630
  Receipt Date: 20040616
  Transmission Date: 20050107
  Serious: Yes (Other)
  Sender: FDA-Public Use
  Company Number: 2004040665

PATIENT
  Age: 53 Year
  Sex: Female

DRUGS (7)
  1. TIKOSYN [Suspect]
     Indication: ILL-DEFINED DISORDER
     Dosage: 1000 MCG (500 MCG, 2 IN 1D), ORAL
     Route: 048
     Dates: start: 20040407
  2. NICOTINIC ACID [Suspect]
     Indication: ILL-DEFINED DISORDER
     Dosage: (500 MG)
  3. LISINOPRIL [Concomitant]
  4. TRAZODONE HCL [Concomitant]
  5. ALL OTHER THERAPEUTIC PRODUCTS (ALL OTHER THERAPEUTIC PRODUCTS) [Concomitant]
  6. NITROGLYCERIN [Concomitant]
  7. INSULIN LISPRO (INSULIN LISPRO) [Concomitant]

REACTIONS (3)
  - ATRIAL FIBRILLATION [None]
  - DRUG INTERACTION [None]
  - VENTRICULAR FIBRILLATION [None]
